FAERS Safety Report 9190656 (Version 2)
Quarter: 2013Q2

REPORT INFORMATION
  Report Type: Spontaneous
  Country: US (occurrence: US)
  Receive Date: 20130326
  Receipt Date: 20130403
  Transmission Date: 20140414
  Serious: Yes (Hospitalization, Other)
  Sender: FDA-Public Use
  Company Number: US-BAXTER-2013BAX010438

PATIENT
  Age: 49 Year
  Sex: Female

DRUGS (2)
  1. DIANEAL LOW CALCIUM [Suspect]
     Indication: PERITONEAL DIALYSIS
     Route: 033
  2. EXTRANEAL [Suspect]
     Indication: PERITONEAL DIALYSIS
     Route: 033

REACTIONS (5)
  - Septic shock [Recovered/Resolved]
  - Small intestinal obstruction [Recovered/Resolved]
  - Hypovolaemia [Recovered/Resolved]
  - Hypotension [Recovered/Resolved]
  - Peritonitis [Recovered/Resolved]
